FAERS Safety Report 6647046-0 (Version None)
Quarter: 2010Q1

REPORT INFORMATION
  Report Type: 
  Country: None (occurrence: None)
  Receive Date: 20100323
  Receipt Date: 20100314
  Transmission Date: 20100710
  Serious: Yes (Other)
  Sender: FDA-Public Use
  Company Number: US-SANOFI-AVENTIS-A03200704264

PATIENT
  Age: 45 Year
  Sex: Female
  Weight: 58.5 kg

DRUGS (6)
  1. AMBIEN [Suspect]
     Indication: INSOMNIA
     Dosage: UNIT DOSE: 10 MG
     Route: 048
     Dates: start: 20020101, end: 20040101
  2. AMBIEN [Suspect]
     Indication: ANXIETY
     Dosage: UNIT DOSE: 10 MG
     Route: 048
     Dates: start: 20020101, end: 20040101
  3. LOPRESSOR [Concomitant]
     Indication: PALPITATIONS
  4. NEXIUM /UNK/ [Concomitant]
  5. ZOLOFT [Concomitant]
  6. ATIVAN [Concomitant]

REACTIONS (5)
  - CONTUSION [None]
  - FATIGUE [None]
  - HANGOVER [None]
  - SOMNAMBULISM [None]
  - WEIGHT INCREASED [None]
